FAERS Safety Report 11787287 (Version 2)
Quarter: 2016Q1

REPORT INFORMATION
  Report Type: Spontaneous
  Country: FR (occurrence: FR)
  Receive Date: 20151130
  Receipt Date: 20160126
  Transmission Date: 20160525
  Serious: Yes (Hospitalization, Other)
  Sender: FDA-Public Use
  Company Number: FR-ELI_LILLY_AND_COMPANY-FR201511005088

PATIENT
  Age: 20 Year
  Sex: Male
  Weight: 55 kg

DRUGS (15)
  1. DETICENE [Concomitant]
     Active Substance: DACARBAZINE
     Indication: CHEMOTHERAPY
     Dosage: UNK, UNKNOWN
     Route: 042
     Dates: start: 20151016, end: 20151109
  2. ONDANSETRON [Concomitant]
     Active Substance: ONDANSETRON
     Dosage: UNK, UNKNOWN
     Route: 042
     Dates: start: 20151104
  3. VANCOMYCINE [Concomitant]
     Active Substance: VANCOMYCIN
     Dosage: 15 DF, UNKNOWN
     Route: 042
     Dates: start: 20151107
  4. GEMZAR [Suspect]
     Active Substance: GEMCITABINE HYDROCHLORIDE
     Indication: NEOPLASM MALIGNANT
  5. HYDROXYZINE [Concomitant]
     Active Substance: HYDROXYZINE\HYDROXYZINE HYDROCHLORIDE
     Dosage: UNK, UNKNOWN
     Route: 042
     Dates: start: 20151104
  6. CEFTRIAXONE. [Concomitant]
     Active Substance: CEFTRIAXONE
     Dosage: 15 DF, UNKNOWN
     Route: 042
     Dates: start: 20151107
  7. GEMZAR [Suspect]
     Active Substance: GEMCITABINE HYDROCHLORIDE
     Indication: EWING^S SARCOMA
     Dosage: 3000 MG (1800MG/M2), EVERY 3 WEEKS
     Route: 065
     Dates: start: 20151016, end: 20151109
  8. AMIKACINE                          /00391001/ [Concomitant]
     Active Substance: AMIKACIN
     Dosage: UNK, UNKNOWN
     Route: 065
     Dates: start: 20151107
  9. PARACETAMOL [Concomitant]
     Active Substance: ACETAMINOPHEN
     Dosage: 15 DF, UNKNOWN
     Route: 042
     Dates: start: 20151107
  10. LAROXYL [Concomitant]
     Active Substance: AMITRIPTYLINE
     Dosage: UNK, UNKNOWN
     Route: 048
     Dates: start: 20151104
  11. METHYLPREDNISOLONE. [Concomitant]
     Active Substance: METHYLPREDNISOLONE
     Dosage: UNK, UNKNOWN
     Route: 042
     Dates: start: 20151104, end: 20151104
  12. MORPHINE [Concomitant]
     Active Substance: MORPHINE
     Dosage: UNK, UNKNOWN
     Route: 042
     Dates: start: 20151104
  13. GABAPENTINE [Concomitant]
     Active Substance: GABAPENTIN
     Dosage: UNK, UNKNOWN
     Route: 048
     Dates: start: 20151104
  14. TRAMADOL. [Concomitant]
     Active Substance: TRAMADOL
     Dosage: UNK, UNKNOWN
     Route: 042
     Dates: start: 20151104
  15. RIVOTRIL [Concomitant]
     Active Substance: CLONAZEPAM
     Dosage: UNK, UNKNOWN
     Route: 042
     Dates: start: 20151104

REACTIONS (9)
  - Condition aggravated [Unknown]
  - Pancytopenia [Unknown]
  - Off label use [Recovered/Resolved]
  - Skin necrosis [Recovering/Resolving]
  - Creatinine renal clearance increased [Unknown]
  - Blood fibrinogen increased [Unknown]
  - Chills [Unknown]
  - Blood urea decreased [Unknown]
  - Hypothermia [Unknown]

NARRATIVE: CASE EVENT DATE: 20151016
